FAERS Safety Report 20813238 (Version 3)
Quarter: 2022Q2

REPORT INFORMATION
  Report Type: Spontaneous
  Country: FR (occurrence: FR)
  Receive Date: 20220511
  Receipt Date: 20220607
  Transmission Date: 20220720
  Serious: Yes (Hospitalization)
  Sender: FDA-Public Use
  Company Number: None

PATIENT
  Age: 35 Year
  Sex: Female

DRUGS (6)
  1. DEXAMETHASONE [Suspect]
     Active Substance: DEXAMETHASONE
     Indication: General anaesthesia
     Dosage: DOSAGE NOT KNOWN
     Route: 042
     Dates: start: 202009, end: 202009
  2. CEFAZOLIN SODIUM [Suspect]
     Active Substance: CEFAZOLIN SODIUM
     Indication: General anaesthesia
     Dosage: DOSAGE NOT KNOWN
     Route: 042
     Dates: start: 202009, end: 202009
  3. KETAMINE [Suspect]
     Active Substance: KETAMINE
     Indication: General anaesthesia
     Dosage: DOSAGE NOT KNOWN
     Route: 042
     Dates: start: 202009, end: 202009
  4. PROPOFOL [Suspect]
     Active Substance: PROPOFOL
     Indication: General anaesthesia
     Dosage: DOSAGE NOT KNOWN
     Route: 042
     Dates: start: 202009, end: 202009
  5. SUFENTANIL [Suspect]
     Active Substance: SUFENTANIL
     Indication: General anaesthesia
     Dosage: DOSAGE NOT KNOWN
     Route: 042
     Dates: start: 202009, end: 202009
  6. MIVACRON [Suspect]
     Active Substance: MIVACURIUM CHLORIDE
     Indication: General anaesthesia
     Dosage: DOSAGE NOT KNOWN
     Route: 042
     Dates: start: 202009, end: 202009

REACTIONS (2)
  - Hypotension [Recovered/Resolved]
  - Urticaria [Recovered/Resolved]

NARRATIVE: CASE EVENT DATE: 20200901
